FAERS Safety Report 21175636 (Version 3)
Quarter: 2022Q3

REPORT INFORMATION
  Report Type: Other
  Country: CA (occurrence: None)
  Receive Date: 20220805
  Receipt Date: 20220816
  Transmission Date: 20221027
  Serious: No
  Sender: FDA-Public Use
  Company Number: CA-ROCHE-2545666

PATIENT
  Age: 30 Year
  Sex: Female

DRUGS (6)
  1. OCREVUS [Suspect]
     Active Substance: OCRELIZUMAB
     Indication: Relapsing-remitting multiple sclerosis
     Dosage: 300 MG AT DAY 0 AND 14, THEN 600 MG EVERY 6 MONTH
     Route: 042
     Dates: start: 20190806
  2. MIRABEGRON [Concomitant]
     Active Substance: MIRABEGRON
  3. BIOTIN [Concomitant]
     Active Substance: BIOTIN
  4. OMEGA 3 [Concomitant]
     Active Substance: CAPSAICIN
  5. VITAMIN D3 [Concomitant]
     Active Substance: CHOLECALCIFEROL
  6. COVID-19 VACCINE NOS [Concomitant]
     Active Substance: COVID-19 VACCINE NOS

REACTIONS (17)
  - Illness [Recovering/Resolving]
  - Body temperature increased [Recovered/Resolved]
  - Urinary tract infection [Recovered/Resolved]
  - Skin infection [Recovered/Resolved]
  - Cough [Recovered/Resolved]
  - Ear pain [Unknown]
  - Oropharyngeal pain [Recovered/Resolved]
  - Feeling hot [Unknown]
  - Skin laceration [Unknown]
  - Nasal congestion [Not Recovered/Not Resolved]
  - Pyrexia [Not Recovered/Not Resolved]
  - Nasopharyngitis [Recovered/Resolved]
  - Haematoma [Not Recovered/Not Resolved]
  - Balance disorder [Recovered/Resolved]
  - Urinary incontinence [Not Recovered/Not Resolved]
  - COVID-19 [Unknown]
  - Energy increased [Unknown]

NARRATIVE: CASE EVENT DATE: 20191201
